FAERS Safety Report 10592745 (Version 1)
Quarter: 2014Q4

REPORT INFORMATION
  Report Type: Spontaneous
  Country: US (occurrence: None)
  Receive Date: 20141118
  Receipt Date: 20141118
  Transmission Date: 20150529
  Serious: Yes (Hospitalization)
  Sender: FDA-Public Use
  Company Number: None

PATIENT
  Age: 45 Year
  Sex: Male
  Weight: 61.2 kg

DRUGS (16)
  1. MOXIFLOXACIN [Concomitant]
     Active Substance: MOXIFLOXACIN
  2. CLONAZEPAM. [Concomitant]
     Active Substance: CLONAZEPAM
  3. ISONIAZID. [Concomitant]
     Active Substance: ISONIAZID
  4. PANTOPRAZOLE [Concomitant]
     Active Substance: PANTOPRAZOLE SODIUM
  5. NAPROXEN. [Concomitant]
     Active Substance: NAPROXEN
  6. TRAMADOL [Concomitant]
     Active Substance: TRAMADOL
  7. PYRAZINAMIDE. [Suspect]
     Active Substance: PYRAZINAMIDE
     Indication: PULMONARY TUBERCULOSIS
     Route: 048
     Dates: start: 20141006, end: 20141024
  8. RIFAMPIN. [Suspect]
     Active Substance: RIFAMPIN
     Indication: DISSEMINATED TUBERCULOSIS
     Route: 048
     Dates: start: 20141006, end: 20141024
  9. LABETALOL [Concomitant]
     Active Substance: LABETALOL\LABETALOL HYDROCHLORIDE
  10. PYRIDXINE B6 [Concomitant]
  11. RIFAMPIN 600MG [Concomitant]
  12. ONDANSETRON [Concomitant]
     Active Substance: ONDANSETRON
  13. PREDNISONE. [Concomitant]
     Active Substance: PREDNISONE
  14. PYRAZINAMIDE. [Concomitant]
     Active Substance: PYRAZINAMIDE
  15. ISONIAZID. [Concomitant]
     Active Substance: ISONIAZID
  16. MULTIVITAMIN/MINERALS DAILY [Concomitant]

REACTIONS (4)
  - Tubulointerstitial nephritis [None]
  - Fluid overload [None]
  - Nephritis allergic [None]
  - Blood pressure increased [None]

NARRATIVE: CASE EVENT DATE: 20141023
